FAERS Safety Report 6228354-4 (Version None)
Quarter: 2009Q2

REPORT INFORMATION
  Report Type: 
  Country: None (occurrence: None)
  Receive Date: 20090612
  Receipt Date: 20090602
  Transmission Date: 20091009
  Serious: Yes (Hospitalization)
  Sender: FDA-Public Use
  Company Number: DE-ABBOTT-09P-062-0577470-00

PATIENT
  Sex: Male
  Weight: 75 kg

DRUGS (8)
  1. KALETRA [Suspect]
     Indication: HIV INFECTION
  2. TRAMAL LONG [Concomitant]
     Indication: DRUG USE FOR UNKNOWN INDICATION
  3. NOVALGIN [Concomitant]
     Indication: DRUG USE FOR UNKNOWN INDICATION
  4. BROMELAIN [Concomitant]
     Indication: DRUG USE FOR UNKNOWN INDICATION
  5. CYNAT [Concomitant]
     Indication: DRUG USE FOR UNKNOWN INDICATION
     Dosage: FOR 5 DAYS
  6. EMBOLEX [Concomitant]
     Indication: THROMBOSIS PROPHYLAXIS
  7. IBUPROFEN [Concomitant]
     Indication: ANALGESIA
  8. PANTOZOL [Concomitant]
     Indication: PROPHYLAXIS AGAINST GASTROINTESTINAL ULCER

REACTIONS (3)
  - FALL [None]
  - HAND FRACTURE [None]
  - JOINT DISLOCATION [None]
